FAERS Safety Report 8466483-5 (Version None)
Quarter: 2012Q2

REPORT INFORMATION
  Report Type: 
  Country: None (occurrence: None)
  Receive Date: 20120626
  Receipt Date: 20120620
  Transmission Date: 20120825
  Serious: Yes (Other)
  Sender: FDA-Public Use
  Company Number: ES-AMGEN-ESPSP2012037800

PATIENT
  Age: 46 Year
  Sex: Male

DRUGS (6)
  1. CINACALCET HYDROCHLORIDE [Suspect]
     Dosage: 60 MG, UNK
     Dates: start: 20120101, end: 20120427
  2. CINACALCET HYDROCHLORIDE [Suspect]
     Indication: HYPERCALCAEMIA
     Dosage: 30 MG, UNK
     Dates: start: 20111031
  3. CINACALCET HYDROCHLORIDE [Suspect]
     Dosage: 30 MG, UNK
     Dates: start: 20111201
  4. CINACALCET HYDROCHLORIDE [Suspect]
     Dosage: 60 MG, UNK
     Dates: start: 20111201
  5. CINACALCET HYDROCHLORIDE [Suspect]
     Indication: HYPERPARATHYROIDISM PRIMARY
     Dosage: 30 MG, UNK
     Dates: start: 20111101
  6. BONVIVA                            /01304701/ [Concomitant]
     Dosage: UNK UNK, QMO

REACTIONS (3)
  - PARATHYROID TUMOUR MALIGNANT [None]
  - VITAMIN D DEFICIENCY [None]
  - DIARRHOEA [None]
